FAERS Safety Report 14562979 (Version 2)
Quarter: 2018Q1

REPORT INFORMATION
  Report Type: Spontaneous
  Country: DE (occurrence: DE)
  Receive Date: 20180222
  Receipt Date: 20180322
  Transmission Date: 20180509
  Serious: Yes (Death)
  Sender: FDA-Public Use
  Company Number: DE-PFIZER INC-2018072677

PATIENT
  Age: 98 Year
  Sex: Male
  Weight: 73 kg

DRUGS (3)
  1. OXYCODONE [Concomitant]
     Active Substance: OXYCODONE
     Dosage: 5 MG, 4X/DAY (04:00 H, 08:00 H, 13:00 H AND 19:00 H)
     Route: 048
  2. OXYCODONE [Concomitant]
     Active Substance: OXYCODONE
     Indication: PALLIATIVE CARE
     Dosage: 5 MG, 3X/DAY (16:00 H, 20:00 H AND 24:00 H)
     Route: 048
  3. MORPHINE SULFATE. [Suspect]
     Active Substance: MORPHINE SULFATE
     Indication: PALLIATIVE CARE
     Dosage: UNK (DOSE 200 MG/50 ML)(INFUSION)
     Route: 040

REACTIONS (2)
  - Overdose [Fatal]
  - Toxicity to various agents [Fatal]
